FAERS Safety Report 10014310 (Version 2)
Quarter: 2014Q2

REPORT INFORMATION
  Report Type: Spontaneous
  Country: US (occurrence: US)
  Receive Date: 20140317
  Receipt Date: 20140401
  Transmission Date: 20141212
  Serious: No
  Sender: FDA-Public Use
  Company Number: US-009507513-1402USA013368

PATIENT
  Sex: Female

DRUGS (2)
  1. NASONEX [Suspect]
     Indication: SINUS DISORDER
     Dosage: UNK, PRN
     Route: 045
     Dates: start: 2004
  2. OMEPRAZOLE [Concomitant]

REACTIONS (3)
  - Vertigo [Not Recovered/Not Resolved]
  - Expired product administered [Unknown]
  - Product quality issue [Unknown]
